FAERS Safety Report 10394205 (Version 9)
Quarter: 2015Q1

REPORT INFORMATION
  Report Type: Spontaneous
  Country: US (occurrence: None)
  Receive Date: 20140818
  Receipt Date: 20150211
  Transmission Date: 20150720
  Serious: Yes (Other)
  Sender: FDA-Public Use
  Company Number: ADR-2014-01429

PATIENT
  Age: 48 Year
  Sex: Female

DRUGS (5)
  1. DILAUDID [Suspect]
     Active Substance: HYDROMORPHONE HYDROCHLORIDE
     Indication: PAIN
  2. COMPOUNDED BACLOFEN [Suspect]
     Active Substance: BACLOFEN
     Indication: PAIN
  3. CLONIDINE. [Suspect]
     Active Substance: CLONIDINE
     Dosage: (CONCENTRATION 150MCG/ML;  DOSE 51.06MCG/DAY)
  4. POSSIBLE FIFTH UNKNOWN MEDICATION (INTRATHECAL) [Suspect]
     Active Substance: UNSPECIFIED INGREDIENT
     Route: 037
  5. SUFENTANIL [Suspect]
     Active Substance: SUFENTANIL
     Dosage: (CONCENTRATION 215MCG/ML;  DOSE 85.1MCG/DAY)

REACTIONS (13)
  - Product quality issue [None]
  - Feeling abnormal [None]
  - Pain [None]
  - Influenza like illness [None]
  - Nausea [None]
  - Agitation [None]
  - Hyperhidrosis [None]
  - Lethargy [None]
  - Psychomotor hyperactivity [None]
  - Withdrawal syndrome [None]
  - Accidental overdose [None]
  - Malaise [None]
  - Device infusion issue [None]
